FAERS Safety Report 5897545-4 (Version None)
Quarter: 2008Q3

REPORT INFORMATION
  Report Type: 
  Country: None (occurrence: None)
  Receive Date: 20080916
  Receipt Date: 20080404
  Transmission Date: 20090109
  Serious: Yes (Other)
  Sender: FDA-Public Use
  Company Number: S08-USA-00744-01

PATIENT
  Age: 37 Year
  Sex: Female

DRUGS (4)
  1. CELEXA [Suspect]
     Indication: ANXIETY
     Dosage: 40 MG (40 MG,ONCE A DAY),ORAL
     Route: 048
     Dates: start: 20080211, end: 20080327
  2. CELEXA [Suspect]
     Indication: ANXIETY
     Dosage: 20 MG (20 MG,ONCE A DAY),ORAL
     Route: 048
     Dates: start: 20080328
  3. CELEXA [Suspect]
     Indication: ANXIETY
     Dosage: 20 MG (20 MG,ONCE A DAY),ORAL
     Route: 048
     Dates: start: 20080204, end: 20080210
  4. WELLBUTRIN [Suspect]
     Indication: DEPRESSION
     Dosage: 150 MG 9150 MG,ONCE A DAY)
     Dates: start: 20070401, end: 20080201

REACTIONS (2)
  - INSOMNIA [None]
  - SUICIDAL IDEATION [None]
